FAERS Safety Report 22179673 (Version 1)
Quarter: 2023Q2

REPORT INFORMATION
  Report Type: Spontaneous
  Country: US (occurrence: US)
  Receive Date: 20230406
  Receipt Date: 20230406
  Transmission Date: 20230721
  Serious: No
  Sender: FDA-Public Use
  Company Number: US-JNJFOC-20230374069

PATIENT
  Sex: Female

DRUGS (1)
  1. DARZALEX [Suspect]
     Active Substance: DARATUMUMAB
     Indication: Plasma cell myeloma
     Dosage: LOT #: MCS4T29 EXPIRATION DATE: 2/2024- 100 MG VIALS OF 3 ?LOT#: DVA0201 EXPIRATION DATE: 12/2023- 4
     Route: 042

REACTIONS (3)
  - Blood potassium decreased [Unknown]
  - Back pain [Unknown]
  - Product dose omission issue [Unknown]

NARRATIVE: CASE EVENT DATE: 20230327
